FAERS Safety Report 10125807 (Version 3)
Quarter: 2014Q3

REPORT INFORMATION
  Report Type: Report from Study
  Country: BR (occurrence: BR)
  Receive Date: 20140425
  Receipt Date: 20140707
  Transmission Date: 20150326
  Serious: Yes (Hospitalization, Other)
  Sender: FDA-Public Use
  Company Number: PHHY2014BR048765

PATIENT
  Sex: Female
  Weight: 64 kg

DRUGS (2)
  1. FORASEQ [Suspect]
     Active Substance: BUDESONIDE\FORMOTEROL FUMARATE
     Dosage: 3 DF, Q8H (2 OR 3 TIMES A DAY EACH 8 HOURS)
     Route: 055
  2. FORASEQ [Suspect]
     Active Substance: BUDESONIDE\FORMOTEROL FUMARATE
     Indication: ASTHMA
     Dosage: 1 DF, BID (AT MORNING AND NIGHT)
     Route: 048

REACTIONS (10)
  - Femur fracture [Unknown]
  - Osteoporosis [Unknown]
  - Cough [Unknown]
  - Cataract [Unknown]
  - Nasopharyngitis [Unknown]
  - Visual acuity reduced [Recovering/Resolving]
  - Influenza [Recovering/Resolving]
  - Fall [Unknown]
  - Asthma [Unknown]
  - Hypersensitivity [Recovering/Resolving]
